FAERS Safety Report 8868821 (Version 1)
Quarter: 2012Q4

REPORT INFORMATION
  Report Type: 
  Country: US (occurrence: US)
  Receive Date: 20121026
  Receipt Date: 20121026
  Transmission Date: 20130627
  Serious: No
  Sender: FDA-Public Use
  Company Number: US-AMGEN-USASP2012047557

PATIENT
  Age: 44 Year
  Sex: Female
  Weight: 63.49 kg

DRUGS (3)
  1. ENBREL [Suspect]
     Indication: PRODUCT USED FOR UNKNOWN INDICATION
     Dosage: 50 mg, qwk
     Route: 058
     Dates: start: 1998
  2. MULTIVIT [Concomitant]
     Dosage: UNK
  3. TYLENOL /00020001/ [Concomitant]
     Dosage: UNK

REACTIONS (1)
  - Bronchitis [Recovered/Resolved]
